FAERS Safety Report 13357298 (Version 7)
Quarter: 2018Q2

REPORT INFORMATION
  Report Type: Report from Study
  Country: None (occurrence: US)
  Receive Date: 20170322
  Receipt Date: 20180511
  Transmission Date: 20180711
  Serious: Yes (Hospitalization, Other)
  Sender: FDA-Public Use
  Company Number: US-ABBVIE-17K-163-1912116-00

PATIENT
  Sex: Female

DRUGS (4)
  1. HUMIRA [Suspect]
     Active Substance: ADALIMUMAB
     Route: 058
     Dates: start: 2017
  2. HUMIRA [Suspect]
     Active Substance: ADALIMUMAB
     Indication: CROHN^S DISEASE
     Route: 058
     Dates: end: 2017
  3. APRISO [Concomitant]
     Active Substance: MESALAMINE
     Indication: PRODUCT USED FOR UNKNOWN INDICATION
  4. CREON [Concomitant]
     Active Substance: PANCRELIPASE AMYLASE\PANCRELIPASE LIPASE\PANCRELIPASE PROTEASE
     Indication: PRODUCT USED FOR UNKNOWN INDICATION

REACTIONS (21)
  - Clostridium difficile infection [Recovered/Resolved]
  - Alopecia [Not Recovered/Not Resolved]
  - Foot deformity [Unknown]
  - Vitamin B12 deficiency [Recovered/Resolved]
  - Feeling abnormal [Unknown]
  - Visual impairment [Unknown]
  - Urinary tract infection [Unknown]
  - Fall [Unknown]
  - Diabetes mellitus [Unknown]
  - Loss of consciousness [Recovered/Resolved]
  - Upper limb fracture [Unknown]
  - Confusional state [Unknown]
  - Arthralgia [Unknown]
  - Loss of consciousness [Unknown]
  - Mental impairment [Recovered/Resolved]
  - Abdominal pain upper [Unknown]
  - Pain in extremity [Unknown]
  - Ligament sprain [Unknown]
  - Feeling cold [Unknown]
  - Wrist fracture [Recovering/Resolving]
  - Neuropathy peripheral [Not Recovered/Not Resolved]

NARRATIVE: CASE EVENT DATE: 2017
